FAERS Safety Report 14156646 (Version 1)
Quarter: 2017Q4

REPORT INFORMATION
  Report Type: Spontaneous
  Country: US (occurrence: US)
  Receive Date: 20171103
  Receipt Date: 20171103
  Transmission Date: 20180321
  Serious: Yes (Hospitalization)
  Sender: FDA-Public Use
  Company Number: US-BRISTOL-MYERS SQUIBB COMPANY-BMS-2017-095937

PATIENT
  Sex: Male

DRUGS (1)
  1. ORENCIA [Suspect]
     Active Substance: ABATACEPT
     Indication: PRODUCT USED FOR UNKNOWN INDICATION
     Dosage: UNKNOWN
     Route: 065
     Dates: start: 20171010

REACTIONS (7)
  - Hyperhidrosis [Unknown]
  - Pain [Unknown]
  - Gait disturbance [Unknown]
  - Feeling abnormal [Unknown]
  - Urticaria [Unknown]
  - Dyspnoea [Unknown]
  - Pyrexia [Unknown]
